FAERS Safety Report 19895526 (Version 1)
Quarter: 2021Q3

REPORT INFORMATION
  Report Type: Other
  Country: DE (occurrence: DE)
  Receive Date: 20210929
  Receipt Date: 20210929
  Transmission Date: 20211014
  Serious: Yes (Other)
  Sender: FDA-Public Use
  Company Number: DE-LUPIN PHARMACEUTICALS INC.-2021-18618

PATIENT
  Age: 38 Year
  Sex: Female

DRUGS (1)
  1. OXYCODONE [Suspect]
     Active Substance: OXYCODONE
     Indication: ARTHRALGIA
     Dosage: 90 MILLIGRAM PER DAY (3 SEPARATED DOSES)
     Route: 048
     Dates: start: 20200219, end: 20201111

REACTIONS (1)
  - Exposure during pregnancy [Unknown]
